FAERS Safety Report 6129521-0 (Version None)
Quarter: 2009Q1

REPORT INFORMATION
  Report Type: 
  Country: None (occurrence: None)
  Receive Date: 20090324
  Receipt Date: 20090314
  Transmission Date: 20090719
  Serious: Yes (Hospitalization)
  Sender: FDA-Public Use
  Company Number: PHHY2009FI01787

PATIENT
  Sex: Female

DRUGS (1)
  1. FEMAR [Suspect]
     Indication: BREAST CANCER
     Dosage: UNK
     Dates: start: 20071201

REACTIONS (4)
  - CYANOSIS [None]
  - MONONEURITIS [None]
  - VASCULITIS [None]
  - WEGENER'S GRANULOMATOSIS [None]
